FAERS Safety Report 7783600-0 (Version None)
Quarter: 2011Q3

REPORT INFORMATION
  Report Type: 
  Country: None (occurrence: None)
  Receive Date: 20110928
  Receipt Date: 20110926
  Transmission Date: 20111222
  Serious: Yes (Death, Life-Threatening)
  Sender: FDA-Public Use
  Company Number: JP-GENZYME-THYM-1002026

PATIENT
  Sex: Female
  Weight: 45 kg

DRUGS (36)
  1. FLUCONAZOLE [Concomitant]
     Indication: ANTIFUNGAL PROPHYLAXIS
     Dosage: UNK
     Dates: start: 20100609, end: 20100629
  2. DIAZEPAM [Concomitant]
     Indication: HYPERVENTILATION
     Dosage: UNK
     Dates: start: 20100908, end: 20101111
  3. CEFEPIME HYDROCHLORIDE [Concomitant]
     Indication: INFECTION PROPHYLAXIS
     Dosage: UNK
     Dates: start: 20100609, end: 20100625
  4. LENOGRASTIM [Concomitant]
     Indication: WHITE BLOOD CELL COUNT INCREASED
     Dosage: UNK
     Dates: start: 20100616, end: 20100622
  5. ACYCLOVIR [Concomitant]
     Dosage: UNK
     Dates: start: 20100616, end: 20100625
  6. THROMBATE III [Concomitant]
     Indication: SUPPLEMENTATION THERAPY
     Dosage: UNK
     Dates: start: 20100820, end: 20100822
  7. LANSOPRAZOLE [Concomitant]
     Indication: PROPHYLAXIS AGAINST GASTROINTESTINAL ULCER
     Dosage: UNK
     Dates: start: 20101113
  8. MICAFUNGIN SODIUM [Concomitant]
     Indication: ANTIFUNGAL PROPHYLAXIS
     Dosage: UNK
     Dates: start: 20100616, end: 20100706
  9. PREDNISONE [Concomitant]
     Indication: GRAFT VERSUS HOST DISEASE
     Dosage: UNK
     Dates: start: 20100815
  10. GRENOL [Concomitant]
     Indication: INTRACRANIAL HYPOTENSION
     Dosage: UNK
     Dates: start: 20101112
  11. THYMOGLOBULIN [Suspect]
     Indication: BONE MARROW CONDITIONING REGIMEN
     Dosage: 50 MG, QD
     Route: 042
     Dates: start: 20100609, end: 20100610
  12. URSODIOL [Concomitant]
     Indication: PROPHYLAXIS
     Dosage: UNK
     Dates: start: 20100609
  13. FAMOTIDINE [Concomitant]
     Indication: PROPHYLAXIS AGAINST GASTROINTESTINAL ULCER
     Dosage: UNK
     Dates: start: 20100609, end: 20100625
  14. MYCOPHENOLATE MOFETIL [Concomitant]
     Indication: PROPHYLAXIS AGAINST GRAFT VERSUS HOST DISEASE
     Dosage: UNK
     Dates: start: 20100902
  15. OMEPRAZOLE [Concomitant]
     Indication: PROPHYLAXIS AGAINST GASTROINTESTINAL ULCER
     Dosage: UNK
     Dates: start: 20100116, end: 20100706
  16. DOPAMINE HYDROCHLORIDE [Concomitant]
     Indication: BLOOD ANTIDIURETIC HORMONE
     Dosage: UNK
     Dates: start: 20100818, end: 20100827
  17. FILGRASTIM [Concomitant]
     Indication: WHITE BLOOD CELL COUNT INCREASED
     Dosage: UNK
     Dates: start: 20100923, end: 20101001
  18. MEROPENEM [Concomitant]
     Indication: SEPSIS
     Dosage: UNK
     Dates: start: 20100907, end: 20100924
  19. VALACYCLOVIR HYDROCHLORIDE [Concomitant]
     Indication: ANTIVIRAL PROPHYLAXIS
     Dosage: UNK
     Dates: start: 20101002, end: 20101101
  20. HEPARIN [Concomitant]
     Indication: PRODUCT USED FOR UNKNOWN INDICATION
     Dosage: UNK
     Dates: start: 20100609, end: 20100713
  21. FUROSEMIDE [Concomitant]
     Indication: OEDEMA
     Dosage: UNK
     Dates: start: 20100707, end: 20100718
  22. RISPERIDONE [Concomitant]
     Indication: HYPERVENTILATION
     Dosage: UNK
     Dates: start: 20100908, end: 20101110
  23. MICONAZOLE NITRATE [Concomitant]
     Indication: ORAL CANDIDIASIS
     Dosage: UNK
     Dates: start: 20101021, end: 20101027
  24. PHENOBARBITAL [Concomitant]
     Indication: CONVULSION PROPHYLAXIS
     Dosage: UNK
     Dates: start: 20101113
  25. TACROLIMUS [Concomitant]
     Indication: PROPHYLAXIS AGAINST GRAFT VERSUS HOST DISEASE
     Dosage: UNK
     Dates: start: 20100609, end: 20100710
  26. TACROLIMUS [Concomitant]
     Indication: PREMEDICATION
  27. IMIPENEM [Concomitant]
     Indication: INFECTION PROPHYLAXIS
     Dosage: UNK
     Dates: start: 20100626, end: 20100716
  28. FOSCARNET SODIUM [Concomitant]
     Indication: ANTIVIRAL PROPHYLAXIS
     Dosage: UNK
     Dates: start: 20100626, end: 20100706
  29. ZOSYN [Concomitant]
     Indication: SEPSIS
     Dosage: UNK
     Dates: start: 20100831, end: 20100910
  30. ACYCLOVIR [Concomitant]
     Indication: ANTIVIRAL PROPHYLAXIS
     Dosage: UNK
     Dates: start: 20100609, end: 20100620
  31. THROMBOMODULIN ALFA [Concomitant]
     Indication: DISSEMINATED INTRAVASCULAR COAGULATION
     Dosage: UNK
     Dates: start: 20101201, end: 20101207
  32. VORICONAZOLE [Concomitant]
     Indication: ANTIFUNGAL PROPHYLAXIS
     Dosage: UNK
     Dates: start: 20100707, end: 20100820
  33. ROXITHROMYCIN [Concomitant]
     Indication: ANTIBIOTIC PROPHYLAXIS
     Dosage: UNK
     Dates: start: 20100710, end: 20100825
  34. CLOBAZAM [Concomitant]
     Indication: CONVULSION PROPHYLAXIS
     Dosage: UNK
     Dates: start: 20101113
  35. TEICOPLANIN [Concomitant]
     Indication: INFECTION PROPHYLAXIS
     Dosage: UNK
     Dates: start: 20100626, end: 20100716
  36. AMPHOTERICIN B [Concomitant]
     Indication: PNEUMONIA FUNGAL
     Dosage: UNK
     Dates: start: 20101213

REACTIONS (5)
  - SEPSIS [None]
  - CYTOMEGALOVIRUS TEST POSITIVE [None]
  - VIRAL HAEMORRHAGIC CYSTITIS [None]
  - INTERSTITIAL LUNG DISEASE [None]
  - EPSTEIN-BARR VIRUS ASSOCIATED LYMPHOPROLIFERATIVE DISORDER [None]
